FAERS Safety Report 12616819 (Version 2)
Quarter: 2016Q3

REPORT INFORMATION
  Report Type: Spontaneous
  Country: KR (occurrence: KR)
  Receive Date: 20160802
  Receipt Date: 20160804
  Transmission Date: 20161109
  Serious: Yes (Hospitalization)
  Sender: FDA-Public Use
  Company Number: KR-009507513-1608KOR000001

PATIENT
  Age: 78 Year
  Sex: Male

DRUGS (44)
  1. FLUOROURACIL. [Concomitant]
     Active Substance: FLUOROURACIL
     Dosage: 1980 MG, QD
     Route: 042
     Dates: start: 20160315, end: 20160317
  2. FLUOROURACIL. [Concomitant]
     Active Substance: FLUOROURACIL
     Dosage: 1980 MG, QD
     Route: 042
     Dates: start: 20160517, end: 20160519
  3. CISPLATIN. [Concomitant]
     Active Substance: CISPLATIN
     Dosage: 73 MG, ONCE
     Route: 042
     Dates: start: 20160517, end: 20160517
  4. ALOXI [Concomitant]
     Active Substance: PALONOSETRON HYDROCHLORIDE
     Dosage: 0.25 MG, ONCE
     Route: 042
     Dates: start: 20160517, end: 20160517
  5. AMOSARTAN [Concomitant]
     Indication: HYPERTENSION
     Dosage: 1 TABLET, QD
     Route: 048
  6. MACPERAN [Concomitant]
     Active Substance: METOCLOPRAMIDE HYDROCHLORIDE
     Dosage: 5 MG, TID
     Route: 048
     Dates: start: 20160520, end: 20160524
  7. EMEND (FOSAPREPITANT DIMEGLUMINE) [Suspect]
     Active Substance: FOSAPREPITANT DIMEGLUMINE
     Indication: PROPHYLAXIS OF NAUSEA AND VOMITING
     Dosage: 150 MG, ONCE
     Route: 042
     Dates: start: 20160216, end: 20160216
  8. EMEND (FOSAPREPITANT DIMEGLUMINE) [Suspect]
     Active Substance: FOSAPREPITANT DIMEGLUMINE
     Dosage: 150 MG, ONCE
     Route: 042
     Dates: start: 20160412, end: 20160412
  9. CISPLATIN. [Concomitant]
     Active Substance: CISPLATIN
     Dosage: 73 MG, ONCE
     Route: 042
     Dates: start: 20160412, end: 20160412
  10. DEXA (DEXAMETHASONE SODIUM PHOSPHATE) [Concomitant]
     Dosage: 5 MG, QD
     Route: 042
     Dates: start: 20160315, end: 20160318
  11. ALOXI [Concomitant]
     Active Substance: PALONOSETRON HYDROCHLORIDE
     Indication: PROPHYLAXIS OF NAUSEA AND VOMITING
     Dosage: 0.25 MG, ONCE
     Route: 042
     Dates: start: 20160216, end: 20160216
  12. ALOXI [Concomitant]
     Active Substance: PALONOSETRON HYDROCHLORIDE
     Dosage: 0.25 MG, ONCE
     Route: 042
     Dates: start: 20160412, end: 20160412
  13. TRIMEBUTINE MALEATE [Concomitant]
     Active Substance: TRIMEBUTINE MALEATE
     Indication: CARDIOVASCULAR EVENT PROPHYLAXIS
     Dosage: 1 TABLET, BID
     Route: 048
  14. MAGNESIN (MAGNESIUM SULFATE) [Concomitant]
     Indication: PROPHYLAXIS
     Dosage: 0.5 AMPLE, ONCE
     Route: 042
     Dates: start: 20160315, end: 20160315
  15. MAGNESIN (MAGNESIUM SULFATE) [Concomitant]
     Dosage: 0.5 AMPLE, ONCE
     Route: 042
     Dates: start: 20160517, end: 20160517
  16. EMEND (FOSAPREPITANT DIMEGLUMINE) [Suspect]
     Active Substance: FOSAPREPITANT DIMEGLUMINE
     Dosage: 150 MG, ONCE
     Route: 042
     Dates: start: 20160315, end: 20160315
  17. FLUOROURACIL. [Concomitant]
     Active Substance: FLUOROURACIL
     Dosage: 1980 MG, QD
     Route: 042
     Dates: start: 20160412, end: 20160414
  18. CISPLATIN. [Concomitant]
     Active Substance: CISPLATIN
     Dosage: 73 MG, ONCE
     Route: 042
     Dates: start: 20160315, end: 20160315
  19. DEXA (DEXAMETHASONE SODIUM PHOSPHATE) [Concomitant]
     Dosage: 5 MG, QD
     Route: 042
     Dates: start: 20160412, end: 20160415
  20. SUPERCET [Concomitant]
     Indication: PAIN PROPHYLAXIS
     Dosage: 1 TABLET, QD
     Route: 048
  21. POTASSIUM CHLORIDE. [Concomitant]
     Active Substance: POTASSIUM CHLORIDE
     Dosage: 0.5 AMPLE, BID
     Route: 042
     Dates: start: 20160412, end: 20160412
  22. EMEND (FOSAPREPITANT DIMEGLUMINE) [Suspect]
     Active Substance: FOSAPREPITANT DIMEGLUMINE
     Dosage: 150 MG, ONCE
     Route: 042
     Dates: start: 20160517, end: 20160517
  23. CISPLATIN. [Concomitant]
     Active Substance: CISPLATIN
     Indication: OESOPHAGEAL CARCINOMA
     Dosage: 73 MG, ONCE
     Route: 042
     Dates: start: 20160216, end: 20160216
  24. THRUPAS [Concomitant]
     Indication: PROPHYLAXIS
     Dosage: 4 MG (1 TABLET), BID
     Route: 048
  25. VASTINAN [Concomitant]
     Indication: PROPHYLAXIS
     Dosage: 35 MG (1 TABLET), BID
     Route: 048
  26. ERDOS [Concomitant]
     Indication: PROPHYLAXIS
     Dosage: 300 MG (1 CAPSULE), BID
     Route: 048
  27. AMBROXOL ACEFYLLINATE [Concomitant]
     Active Substance: AMBROXOL ACEFYLLINATE
     Indication: PROPHYLAXIS
     Dosage: 1 CAPSULE, BID
     Route: 048
  28. MACPERAN [Concomitant]
     Active Substance: METOCLOPRAMIDE HYDROCHLORIDE
     Indication: PROPHYLAXIS OF NAUSEA AND VOMITING
     Dosage: 5 MG, TID
     Route: 048
     Dates: start: 20160219, end: 20160223
  29. DEXA (DEXAMETHASONE SODIUM PHOSPHATE) [Concomitant]
     Dosage: 5 MG, QD
     Route: 042
     Dates: start: 20160517, end: 20160520
  30. BAMEDIN [Concomitant]
     Indication: PROPHYLAXIS
     Dosage: 100 MG (1 TABLET), QD
     Route: 048
  31. LASIX [Concomitant]
     Active Substance: FUROSEMIDE
     Dosage: 20 MG, ONCE
     Route: 042
     Dates: start: 20160412, end: 20160412
  32. DEXA (DEXAMETHASONE SODIUM PHOSPHATE) [Concomitant]
     Indication: PROPHYLAXIS OF NAUSEA AND VOMITING
     Dosage: 5 MG, QD
     Route: 042
     Dates: start: 20160216, end: 20160219
  33. ALOXI [Concomitant]
     Active Substance: PALONOSETRON HYDROCHLORIDE
     Dosage: 0.25 MG, ONCE
     Route: 042
     Dates: start: 20160315, end: 20160315
  34. ULCERLMIN [Concomitant]
     Active Substance: SUCRALFATE
     Indication: PROPHYLAXIS
     Dosage: 15 ML, BID
     Route: 048
  35. MACPERAN [Concomitant]
     Active Substance: METOCLOPRAMIDE HYDROCHLORIDE
     Dosage: 5 MG, TID
     Route: 048
     Dates: start: 20160415, end: 20160419
  36. MAGNESIN (MAGNESIUM SULFATE) [Concomitant]
     Dosage: 0.5 AMPLE, ONCE
     Route: 042
     Dates: start: 20160412, end: 20160412
  37. POTASSIUM CHLORIDE. [Concomitant]
     Active Substance: POTASSIUM CHLORIDE
     Indication: PROPHYLAXIS
     Dosage: 0.5 AMPLE, BID
     Route: 042
     Dates: start: 20160315, end: 20160315
  38. POTASSIUM CHLORIDE. [Concomitant]
     Active Substance: POTASSIUM CHLORIDE
     Dosage: 0.5 AMPLE, BID
     Route: 042
     Dates: start: 20160517, end: 20160517
  39. LASIX [Concomitant]
     Active Substance: FUROSEMIDE
     Indication: PROPHYLAXIS
     Dosage: 20 MG, ONCE
     Route: 042
     Dates: start: 20160216, end: 20160216
  40. LASIX [Concomitant]
     Active Substance: FUROSEMIDE
     Dosage: 20 MG, ONCE
     Route: 042
     Dates: start: 20160315, end: 20160315
  41. FLUOROURACIL. [Concomitant]
     Active Substance: FLUOROURACIL
     Indication: OESOPHAGEAL CARCINOMA
     Dosage: 2000 MG, QD
     Route: 042
     Dates: start: 20160216, end: 20160218
  42. PARIET [Concomitant]
     Active Substance: RABEPRAZOLE SODIUM
     Indication: CARDIOVASCULAR EVENT PROPHYLAXIS
     Dosage: 10 MG (1 TABLET), QD
     Route: 048
  43. TRESTAN [Concomitant]
     Active Substance: LYSINE HYDROCHLORIDE
     Indication: PROPHYLAXIS
     Dosage: 1 CAPSULE, BID
     Route: 048
  44. LASIX [Concomitant]
     Active Substance: FUROSEMIDE
     Dosage: 20 MG, ONCE
     Route: 042
     Dates: start: 20160517, end: 20160517

REACTIONS (1)
  - Upper respiratory tract infection [Recovered/Resolved]

NARRATIVE: CASE EVENT DATE: 20160421
